FAERS Safety Report 8763804 (Version 1)
Quarter: 2012Q4

REPORT INFORMATION
  Report Type: Spontaneous
  Country: US (occurrence: None)
  Receive Date: 20120831
  Receipt Date: 20120831
  Transmission Date: 20130627
  Serious: Yes (Other)
  Sender: FDA-Public Use
  Company Number: None

PATIENT
  Age: 40 Year
  Sex: Male
  Weight: 95.26 kg

DRUGS (2)
  1. PAROXETINE [Suspect]
     Dosage: One tab
     Route: 048
     Dates: start: 20000101, end: 20120925
  2. PAROXETINE [Suspect]
     Dosage: One tab
     Route: 048
     Dates: start: 20000101, end: 20120925

REACTIONS (3)
  - Anger [None]
  - Screaming [None]
  - Drug withdrawal syndrome [None]
